FAERS Safety Report 15907949 (Version 1)
Quarter: 2019Q1

REPORT INFORMATION
  Report Type: Spontaneous
  Country: FR (occurrence: FR)
  Receive Date: 20190204
  Receipt Date: 20190204
  Transmission Date: 20190417
  Serious: Yes (Hospitalization)
  Sender: FDA-Public Use
  Company Number: FR-PFIZER INC-2019043576

PATIENT
  Age: 76 Year
  Sex: Male

DRUGS (2)
  1. TRIFLUCAN [Suspect]
     Active Substance: FLUCONAZOLE
     Indication: KLEBSIELLA INFECTION
     Dosage: UNK
     Route: 048
     Dates: start: 20060328, end: 20060331
  2. CIFLOX [CIPROFLOXACIN] [Suspect]
     Active Substance: CIPROFLOXACIN
     Indication: KLEBSIELLA INFECTION
     Dosage: UNK
     Route: 048
     Dates: start: 20060328, end: 20060331

REACTIONS (7)
  - Anaemia [Unknown]
  - Thrombocytopenia [Unknown]
  - Rectal haemorrhage [Unknown]
  - Acute kidney injury [Unknown]
  - Product use in unapproved indication [Recovered/Resolved]
  - Haemolytic uraemic syndrome [Recovered/Resolved]
  - Haematuria [Unknown]

NARRATIVE: CASE EVENT DATE: 20060328
